FAERS Safety Report 26134470 (Version 1)
Quarter: 2025Q4

REPORT INFORMATION
  Report Type: Spontaneous
  Country: EU (occurrence: EU)
  Receive Date: 20251209
  Receipt Date: 20251209
  Transmission Date: 20260119
  Serious: Yes (Hospitalization, Other)
  Sender: AUROBINDO
  Company Number: EU-ABBVIE-6538070

PATIENT
  Age: 77 Year
  Sex: Male

DRUGS (43)
  1. AZACITIDINE [Suspect]
     Active Substance: AZACITIDINE
     Indication: Acute myeloid leukaemia
     Dosage: 172.5 MILLIGRAM
     Route: 065
     Dates: start: 20240229, end: 20240307
  2. AZACITIDINE [Suspect]
     Active Substance: AZACITIDINE
     Dosage: 172.5 MILLIGRAM
     Route: 065
     Dates: start: 20240402, end: 20240409
  3. AZACITIDINE [Suspect]
     Active Substance: AZACITIDINE
     Dosage: 80.25 MILLIGRAM
     Route: 065
     Dates: start: 20240425, end: 20240430
  4. AZACITIDINE [Suspect]
     Active Substance: AZACITIDINE
     Dosage: 162.5 MILLIGRAM
     Route: 065
     Dates: start: 20240430, end: 20240507
  5. AZACITIDINE [Suspect]
     Active Substance: AZACITIDINE
     Dosage: 159.75 MILLIGRAM
     Route: 065
     Dates: start: 20240606, end: 20240613
  6. AZACITIDINE [Suspect]
     Active Substance: AZACITIDINE
     Dosage: 159.75 MILLIGRAM
     Route: 065
     Dates: start: 20240710, end: 20240717
  7. AZACITIDINE [Suspect]
     Active Substance: AZACITIDINE
     Dosage: 155.25 MILLIGRAM
     Route: 065
     Dates: start: 20240823, end: 20240830
  8. AZACITIDINE [Suspect]
     Active Substance: AZACITIDINE
     Dosage: 156.75 MILLIGRAM
     Route: 065
     Dates: start: 20241003, end: 20241010
  9. AZACITIDINE [Suspect]
     Active Substance: AZACITIDINE
     Dosage: 159.75 MILLIGRAM
     Route: 065
     Dates: start: 20241121, end: 20241128
  10. AZACITIDINE [Suspect]
     Active Substance: AZACITIDINE
     Dosage: 160.5 MILLIGRAM
     Route: 065
     Dates: start: 20250102, end: 20250109
  11. AZACITIDINE [Suspect]
     Active Substance: AZACITIDINE
     Dosage: 160.5 MILLIGRAM
     Route: 065
     Dates: start: 20250214, end: 20250221
  12. AZACITIDINE [Suspect]
     Active Substance: AZACITIDINE
     Dosage: 80.25 MILLIGRAM
     Route: 065
     Dates: start: 20250530, end: 20250605
  13. AZACITIDINE [Suspect]
     Active Substance: AZACITIDINE
     Dosage: 83.63 MILLIGRAM
     Route: 065
     Dates: start: 20250728, end: 20250801
  14. AZACITIDINE [Suspect]
     Active Substance: AZACITIDINE
     Dosage: 55.44 MILLIGRAM
     Route: 065
     Dates: start: 20250925, end: 20251001
  15. VENETOCLAX [Suspect]
     Active Substance: VENETOCLAX
     Indication: Acute myeloid leukaemia
     Dosage: UNK
     Dates: start: 20240229, end: 20240307
  16. VENETOCLAX [Suspect]
     Active Substance: VENETOCLAX
     Dosage: UNK
     Route: 065
     Dates: start: 20240402, end: 20240409
  17. VENETOCLAX [Suspect]
     Active Substance: VENETOCLAX
     Dosage: UNK
     Route: 065
     Dates: start: 20240430, end: 20240507
  18. VENETOCLAX [Suspect]
     Active Substance: VENETOCLAX
     Dosage: UNK
     Route: 065
     Dates: start: 20240606, end: 20240613
  19. VENETOCLAX [Suspect]
     Active Substance: VENETOCLAX
     Dosage: UNK
     Dates: start: 20240710, end: 20240717
  20. VENETOCLAX [Suspect]
     Active Substance: VENETOCLAX
     Dosage: UNK
     Dates: start: 20240823, end: 20240830
  21. VENETOCLAX [Suspect]
     Active Substance: VENETOCLAX
     Dosage: 200 MILLIGRAM
     Dates: start: 20241003, end: 20241010
  22. VENETOCLAX [Suspect]
     Active Substance: VENETOCLAX
     Dosage: 200 MILLIGRAM
     Dates: start: 20241121, end: 20241128
  23. VENETOCLAX [Suspect]
     Active Substance: VENETOCLAX
     Dosage: 200 MILLIGRAM
     Dates: start: 20250102, end: 20250109
  24. VENETOCLAX [Suspect]
     Active Substance: VENETOCLAX
     Dosage: 200 MILLIGRAM
     Dates: start: 20250214, end: 20250221
  25. VENETOCLAX [Suspect]
     Active Substance: VENETOCLAX
     Dosage: 200 MILLIGRAM
     Dates: start: 20250425, end: 20250430
  26. VENETOCLAX [Suspect]
     Active Substance: VENETOCLAX
     Dosage: 200 MILLIGRAM
     Dates: start: 20250530, end: 20250605
  27. VENETOCLAX [Suspect]
     Active Substance: VENETOCLAX
     Dosage: 200 MILLIGRAM
     Dates: start: 20250728, end: 20250801
  28. VENETOCLAX [Suspect]
     Active Substance: VENETOCLAX
     Dosage: 200 MILLIGRAM
  29. VITAMIN D3 [Concomitant]
     Active Substance: CHOLECALCIFEROL
     Indication: Product used for unknown indication
     Dosage: 2000 UNIT
     Route: 065
  30. ACYCLOVIR [Concomitant]
     Active Substance: ACYCLOVIR
     Indication: Product used for unknown indication
     Dosage: 400 MILLIGRAM (1 DOSAGE FORM400 MILLIGRAM)
     Route: 065
  31. LACTULOSE [Concomitant]
     Active Substance: LACTULOSE
     Indication: Constipation
     Dosage: UNK
     Route: 065
  32. ENOXAPARIN SODIUM [Concomitant]
     Active Substance: ENOXAPARIN SODIUM
     Indication: Product used for unknown indication
     Dosage: 0.8 MILLILITER
     Route: 065
  33. ENALAPRIL [Concomitant]
     Active Substance: ENALAPRIL
     Indication: Product used for unknown indication
     Dosage: 1 DOSAGE FORM, ONCE A DAY (1 DOSAGE FORM5 MILLIGRAM)
     Route: 065
  34. Calperos [Concomitant]
     Indication: Product used for unknown indication
     Dosage: 1 DOSAGE FORM, ONCE A DAY (1 DOSAGE FORM1 GRAM)
     Route: 065
  35. AMIODARONE [Concomitant]
     Active Substance: AMIODARONE
     Indication: Product used for unknown indication
     Dosage: UNK
     Route: 065
  36. DIETARY SUPPLEMENT [Concomitant]
     Active Substance: DIETARY SUPPLEMENT
     Indication: Product used for unknown indication
     Dosage: 3X1 MEASURING CUP
     Route: 065
  37. AMIODARONE HYDROCHLORIDE [Concomitant]
     Active Substance: AMIODARONE HYDROCHLORIDE
     Indication: Product used for unknown indication
     Dosage: 200 MILLIGRAM (1 DOSAGE FORM200 MILLIGRAM)
  38. Zolafren swift [Concomitant]
     Indication: Product used for unknown indication
     Dosage: 1 DOSAGE FORM, ONCE A DAY (1 DOSAGE FORM10 MILLIGRAM)
  39. ESOMEPRAZOLE MAGNESIUM [Concomitant]
     Active Substance: ESOMEPRAZOLE MAGNESIUM
     Indication: Product used for unknown indication
     Dosage: 20 MILLIGRAM (1 DOSAGE FORM20 MILLIGRAM FREQUENCY TEXT: 1-0-0 TAB)
  40. ORNITHINE ASPARTATE [Concomitant]
     Active Substance: ORNITHINE ASPARTATE
     Indication: Product used for unknown indication
     Dosage: 1-0-1 SACHET
     Route: 065
  41. POLYETHYLENE GLYCOL 4000 [Concomitant]
     Active Substance: POLYETHYLENE GLYCOL 4000
     Indication: Constipation
     Dosage: UNK
     Route: 065
  42. Depratal [Concomitant]
     Indication: Product used for unknown indication
     Dosage: 30MG 1/2X1 TABL IN THE MORNING
  43. Debutir [Concomitant]
     Indication: Product used for unknown indication
     Dosage: 1-0-1KAPS
     Route: 065

REACTIONS (11)
  - Altered state of consciousness [Unknown]
  - Hallucination, visual [Recovered/Resolved]
  - Sinus node dysfunction [Recovered/Resolved]
  - Psychotic disorder [Unknown]
  - Atrioventricular block [Recovered/Resolved]
  - Bradycardia [Recovered/Resolved]
  - Adenomatous polyposis coli [Recovered/Resolved]
  - Delusion [Recovered/Resolved]
  - Atrial flutter [Recovered/Resolved]
  - Bone marrow disorder [Unknown]
  - Platelet count abnormal [Unknown]

NARRATIVE: CASE EVENT DATE: 20240101
